FAERS Safety Report 4587657-X (Version None)
Quarter: 2005Q1

REPORT INFORMATION
  Report Type: 
  Country: None (occurrence: None)
  Receive Date: 20050215
  Receipt Date: 20050130
  Transmission Date: 20050727
  Serious: Yes (Other)
  Sender: FDA-Public Use
  Company Number: A-US2005-08759

PATIENT
  Age: 31 Year
  Sex: Female
  Weight: 38 kg

DRUGS (2)
  1. TRACLEER [Suspect]
     Dosage: 62.5 MG, BID, ORAL; 31.25 MG, ORAL
     Route: 048
     Dates: start: 20040330, end: 20040428
  2. TRACLEER [Suspect]
     Dosage: 62.5 MG, BID, ORAL; 31.25 MG, ORAL
     Route: 048
     Dates: start: 20040429, end: 20040701

REACTIONS (5)
  - ALANINE AMINOTRANSFERASE INCREASED [None]
  - ASPARTATE AMINOTRANSFERASE INCREASED [None]
  - BACK PAIN [None]
  - PAIN IN EXTREMITY [None]
  - PALPITATIONS [None]
